FAERS Safety Report 5238641-4 (Version None)
Quarter: 2007Q1

REPORT INFORMATION
  Report Type: 
  Country: None (occurrence: None)
  Receive Date: 20070214
  Receipt Date: 20070214
  Transmission Date: 20070707
  Serious: No
  Sender: FDA-Public Use
  Company Number: None

PATIENT
  Sex: Male
  Weight: 67 kg

DRUGS (7)
  1. CARBOPLATIN [Suspect]
     Indication: LARYNGEAL CANCER
     Dosage: 160MG WEEKLY X3 Q4WEEKS
     Dates: start: 20061219
  2. CARBOPLATIN [Suspect]
     Indication: LARYNGEAL CANCER
     Dosage: 160MG WEEKLY X3 Q4WEEKS
     Dates: start: 20061226
  3. CARBOPLATIN [Suspect]
     Indication: LARYNGEAL CANCER
     Dosage: 160MG WEEKLY X3 Q4WEEKS
     Dates: start: 20070103
  4. CARBOPLATIN [Suspect]
     Indication: LARYNGEAL CANCER
     Dosage: 160MG WEEKLY X3 Q4WEEKS
     Dates: start: 20070116
  5. CARBOPLATIN [Suspect]
     Indication: LARYNGEAL CANCER
     Dosage: 160MG WEEKLY X3 Q4WEEKS
     Dates: start: 20070123
  6. CARBOPLATIN [Suspect]
     Indication: LARYNGEAL CANCER
     Dosage: 160MG WEEKLY X3 Q4WEEKS
     Dates: start: 20070130
  7. TAXOL [Concomitant]

REACTIONS (5)
  - CHEST DISCOMFORT [None]
  - COUGH [None]
  - DYSPNOEA [None]
  - INFUSION RELATED REACTION [None]
  - OXYGEN SATURATION DECREASED [None]
